FAERS Safety Report 21046996 (Version 1)
Quarter: 2022Q3

REPORT INFORMATION
  Report Type: Spontaneous
  Country: US (occurrence: None)
  Receive Date: 20220706
  Receipt Date: 20220706
  Transmission Date: 20221027
  Serious: No
  Sender: FDA-Public Use
  Company Number: 2022A243206

PATIENT
  Sex: Male
  Weight: 81.6 kg

DRUGS (2)
  1. SEROQUEL XR [Suspect]
     Active Substance: QUETIAPINE FUMARATE
     Indication: Bipolar II disorder
     Route: 048
  2. SEROQUEL XR [Suspect]
     Active Substance: QUETIAPINE FUMARATE
     Indication: Bipolar II disorder
     Route: 048

REACTIONS (4)
  - Insomnia [Unknown]
  - Nervous system disorder [Unknown]
  - Parkinsonism [Not Recovered/Not Resolved]
  - Off label use [Unknown]
